FAERS Safety Report 5319285-2 (Version None)
Quarter: 2007Q2

REPORT INFORMATION
  Report Type: 
  Country: None (occurrence: None)
  Receive Date: 20070508
  Receipt Date: 20070428
  Transmission Date: 20071010
  Serious: Yes (Hospitalization)
  Sender: FDA-Public Use
  Company Number: US-PFIZER INC-2007027019

PATIENT
  Age: 35 Year
  Sex: Female

DRUGS (1)
  1. GEODON [Suspect]
     Indication: BIPOLAR I DISORDER
     Dosage: DAILY DOSE:40MG
     Dates: start: 20070322, end: 20070325

REACTIONS (3)
  - HYPERSENSITIVITY [None]
  - RESPIRATORY DEPRESSION [None]
  - SWOLLEN TONGUE [None]
